FAERS Safety Report 6494305-0 (Version None)
Quarter: 2009Q4

REPORT INFORMATION
  Report Type: 
  Country: None (occurrence: None)
  Receive Date: 20091214
  Receipt Date: 20091201
  Transmission Date: 20100525
  Serious: Yes (Hospitalization, Other)
  Sender: FDA-Public Use
  Company Number: US-ELI_LILLY_AND_COMPANY-US200907004500

PATIENT
  Age: 62 Year
  Sex: Male

DRUGS (3)
  1. CYMBALTA [Suspect]
     Dosage: 60 MG, UNK
  2. SEROQUEL [Concomitant]
     Dosage: 150 MG, UNK
  3. RISPERDAL [Concomitant]
     Dosage: 1 MG, 4/D

REACTIONS (3)
  - DIALYSIS [None]
  - HOSPITALISATION [None]
  - LIVER DISORDER [None]
